FAERS Safety Report 23079150 (Version 1)
Quarter: 2023Q4

REPORT INFORMATION
  Report Type: Spontaneous
  Country: CN (occurrence: CN)
  Receive Date: 20231018
  Receipt Date: 20231018
  Transmission Date: 20240110
  Serious: Yes (Hospitalization, Other)
  Sender: FDA-Public Use
  Company Number: CN-PFIZER INC-PV202300169298

PATIENT
  Age: 72 Year
  Sex: Male

DRUGS (6)
  1. SOLU-MEDROL [Suspect]
     Active Substance: METHYLPREDNISOLONE SODIUM SUCCINATE
     Indication: Immunomodulatory therapy
     Dosage: 120 MG, SINGLE
     Route: 041
     Dates: start: 20230614, end: 20230614
  2. SOLU-MEDROL [Suspect]
     Active Substance: METHYLPREDNISOLONE SODIUM SUCCINATE
     Dosage: 200 MG, SINGLE
     Route: 041
     Dates: start: 20230617, end: 20230617
  3. GAZYVA [Suspect]
     Active Substance: OBINUTUZUMAB
     Indication: Immunomodulatory therapy
     Dosage: 1000 MG, 1X/DAY
     Route: 041
     Dates: start: 20230614, end: 20230614
  4. RITUXIMAB [Suspect]
     Active Substance: RITUXIMAB
     Indication: Immunomodulatory therapy
     Dosage: 100 MG, 1X/DAY
     Route: 041
     Dates: start: 20230609, end: 20230609
  5. METHYLPREDNISOLONE SODIUM SUCCINATE [Suspect]
     Active Substance: METHYLPREDNISOLONE SODIUM SUCCINATE
     Indication: Immunomodulatory therapy
     Dosage: 0.5 G, 1X/DAY
     Route: 041
     Dates: start: 20230605, end: 20230607
  6. PREDNISONE ACETATE [Suspect]
     Active Substance: PREDNISONE ACETATE
     Indication: Immunomodulatory therapy
     Dosage: 40 MG, 1X/DAY
     Route: 048
     Dates: start: 20230627, end: 20230705

REACTIONS (2)
  - Cytomegalovirus infection [Recovering/Resolving]
  - Platelet count decreased [Recovering/Resolving]

NARRATIVE: CASE EVENT DATE: 20230705
